FAERS Safety Report 7668631-3 (Version None)
Quarter: 2011Q3

REPORT INFORMATION
  Report Type: 
  Country: None (occurrence: None)
  Receive Date: 20110808
  Receipt Date: 20110808
  Transmission Date: 20111222
  Serious: Yes (Life-Threatening, Disabling)
  Sender: FDA-Public Use
  Company Number: None

PATIENT
  Sex: Female
  Weight: 76.203 kg

DRUGS (1)
  1. ZETIA [Suspect]
     Indication: BLOOD CHOLESTEROL INCREASED
     Dosage: 1 PILL DAILY
     Route: 048
     Dates: start: 20110712, end: 20110715

REACTIONS (2)
  - DEPRESSION [None]
  - SUICIDAL IDEATION [None]
